FAERS Safety Report 6089425 (Version 1)
Quarter: 2020Q3

REPORT INFORMATION
  Report Type: Spontaneous
  Country: DE (occurrence: DE)
  Receive Date: 20060724
  Receipt Date: 20060724
  Transmission Date: 20201104
  Serious: Yes (Other)
  Sender: FDA-Public Use
  Company Number: DE-ROCHE-454854

PATIENT
  Age: 75 Year
  Sex: Female

DRUGS (1)
  1. IBANDRONIC ACID. [Suspect]
     Active Substance: IBANDRONIC ACID
     Indication: BREAST CANCER METASTATIC
     Dosage: ROUTE REPORTED AS INFUSION.
     Route: 050
     Dates: start: 20050515, end: 20060515

REACTIONS (2)
  - Tooth extraction [None]
  - Jaw disorder [Not Recovered/Not Resolved]
